FAERS Safety Report 18361502 (Version 1)
Quarter: 2020Q4

REPORT INFORMATION
  Report Type: Spontaneous
  Country: IT (occurrence: IT)
  Receive Date: 20201008
  Receipt Date: 20201008
  Transmission Date: 20210114
  Serious: Yes (Hospitalization)
  Sender: FDA-Public Use
  Company Number: IT-ENDO PHARMACEUTICALS INC-2020-006541

PATIENT
  Age: 62 Year
  Sex: Male

DRUGS (1)
  1. AMOXICILLIN. [Suspect]
     Active Substance: AMOXICILLIN
     Indication: DENTAL DISORDER PROPHYLAXIS
     Dosage: 500 MG, UNKNOWN
     Route: 048

REACTIONS (2)
  - Cardiac arrest [Recovered/Resolved]
  - Kounis syndrome [Recovered/Resolved]
